FAERS Safety Report 20530155 (Version 1)
Quarter: 2022Q1

REPORT INFORMATION
  Report Type: Report from Study
  Country: US (occurrence: None)
  Receive Date: 20220301
  Receipt Date: 20220301
  Transmission Date: 20220423
  Serious: Yes (Death)
  Sender: FDA-Public Use
  Company Number: US-ROCHE-783395

PATIENT
  Age: 76 Year
  Sex: Female

DRUGS (3)
  1. BEVACIZUMAB [Suspect]
     Active Substance: BEVACIZUMAB
     Indication: Cervix carcinoma
     Dosage: OVER 30-90 MINUTES ON DAY 1 OF CYCLES 2 PLUS, LAST DOSE: 18 JAN 2011
     Route: 042
     Dates: start: 20101206
  2. PACLITAXEL [Suspect]
     Active Substance: PACLITAXEL
     Indication: Cervix carcinoma
     Dosage: OVER 3 HRS ON DAY 1, LAST DOSE: 18 JAN 2011
     Route: 042
     Dates: start: 20101206
  3. CARBOPLATIN [Suspect]
     Active Substance: CARBOPLATIN
     Indication: Cervix carcinoma
     Dosage: 6 AUC ON DAY 1, LAST DOSE: 18 JAN 2011
     Route: 042
     Dates: start: 20101206

REACTIONS (1)
  - Neutrophil count decreased [Fatal]

NARRATIVE: CASE EVENT DATE: 20110131
